FAERS Safety Report 15545307 (Version 2)
Quarter: 2018Q4

REPORT INFORMATION
  Report Type: Spontaneous
  Country: US (occurrence: US)
  Receive Date: 20181024
  Receipt Date: 20181120
  Transmission Date: 20190205
  Serious: No
  Sender: FDA-Public Use
  Company Number: US-PFIZER INC-2018429076

PATIENT
  Age: 53 Year
  Sex: Female
  Weight: 81.65 kg

DRUGS (5)
  1. TRAMADOL. [Concomitant]
     Active Substance: TRAMADOL
     Indication: PAIN
     Dosage: UNK UNK, AS NEEDED(1 OR 2 A DAY)
     Dates: start: 2014
  2. TRAMADOL. [Concomitant]
     Active Substance: TRAMADOL
     Dosage: 1 DF, EVERY COUPLE OF WEEKS
  3. IBUPROFEN. [Suspect]
     Active Substance: IBUPROFEN
     Indication: PAIN IN EXTREMITY
     Dosage: 800 MG, UNK (BEDTIME, TAKES IT ONCE OR TWICE WEEK AT NIGHT)
  4. TRAMADOL. [Concomitant]
     Active Substance: TRAMADOL
     Dosage: 1 DF, DAILY
  5. IBUPROFEN. [Suspect]
     Active Substance: IBUPROFEN
     Indication: PAIN
     Dosage: 800 MG, AS NEEDED [UPTO TID AS NEEDED]
     Route: 048

REACTIONS (2)
  - Intentional product misuse [Unknown]
  - Somnolence [Recovered/Resolved]
